FAERS Safety Report 9670666 (Version 4)
Quarter: 2014Q2

REPORT INFORMATION
  Report Type: Report from Study
  Country: JP (occurrence: JP)
  Receive Date: 20131106
  Receipt Date: 20140515
  Transmission Date: 20141212
  Serious: Yes (Hospitalization)
  Sender: FDA-Public Use
  Company Number: JP-BRISTOL-MYERS SQUIBB COMPANY-19722735

PATIENT
  Age: 82 Year
  Sex: Female
  Weight: 43.7 kg

DRUGS (10)
  1. ORENCIA [Suspect]
     Indication: RHEUMATOID ARTHRITIS
     Dosage: 16APR2013,13MAY2013,16JUN2013,8JUL2013,05AUG2013 AND 02SEP2013
     Route: 041
     Dates: start: 20120906
  2. AMARYL [Concomitant]
     Dosage: TAB
     Route: 048
     Dates: start: 20100319
  3. ETODOLAC [Concomitant]
     Indication: RHEUMATOID ARTHRITIS
     Dosage: TAB
     Route: 048
     Dates: start: 20090414
  4. TAKEPRON [Concomitant]
     Indication: GASTRITIS PROPHYLAXIS
     Route: 048
     Dates: start: 20120319
  5. MUCOSTA [Concomitant]
     Indication: GASTRITIS PROPHYLAXIS
     Dosage: TAB
     Route: 048
     Dates: start: 20090414
  6. JANUVIA [Concomitant]
     Dosage: TAB
     Route: 048
     Dates: start: 20120319
  7. HEPARIN [Concomitant]
     Dates: start: 20120920, end: 20120924
  8. SIGMART [Concomitant]
     Dates: start: 20120920, end: 20120925
  9. BAYASPIRIN [Concomitant]
     Dates: start: 20120920, end: 20120925
  10. FUROSEMIDE [Concomitant]
     Dates: start: 20120920, end: 20120925

REACTIONS (1)
  - Myocardial infarction [Recovering/Resolving]
